FAERS Safety Report 22000921 (Version 3)
Quarter: 2023Q1

REPORT INFORMATION
  Report Type: Spontaneous
  Country: US (occurrence: US)
  Receive Date: 20230216
  Receipt Date: 20230330
  Transmission Date: 20230418
  Serious: Yes (Death, Other)
  Sender: FDA-Public Use
  Company Number: US-Covis Pharma GmbH-2023COV00274

PATIENT
  Age: 82 Year
  Sex: Female
  Weight: 59.4 kg

DRUGS (1)
  1. FERAHEME [Suspect]
     Active Substance: FERUMOXYTOL NON-STOICHIOMETRIC MAGNETITE
     Indication: Iron deficiency anaemia
     Route: 042
     Dates: start: 20230202, end: 20230202

REACTIONS (5)
  - Hypersensitivity [Fatal]
  - Cardiac arrest [Fatal]
  - Unresponsive to stimuli [Not Recovered/Not Resolved]
  - Pulse absent [Not Recovered/Not Resolved]
  - Dizziness [Unknown]

NARRATIVE: CASE EVENT DATE: 20230202
